FAERS Safety Report 17531372 (Version 1)
Quarter: 2020Q1

REPORT INFORMATION
  Report Type: Spontaneous
  Country: US (occurrence: US)
  Receive Date: 20200311
  Receipt Date: 20200311
  Transmission Date: 20200409
  Serious: Yes (Hospitalization)
  Sender: FDA-Public Use
  Company Number: US-INCYTE CORPORATION-2020IN002227

PATIENT

DRUGS (2)
  1. JAKAFI [Suspect]
     Active Substance: RUXOLITINIB
     Indication: MYELOFIBROSIS
     Dosage: 5 MILLIGRAM
     Route: 065
  2. JAKAFI [Suspect]
     Active Substance: RUXOLITINIB
     Dosage: 10 MILLIGRAM
     Route: 065
     Dates: end: 20190911

REACTIONS (5)
  - Platelet count abnormal [Unknown]
  - White blood cell count increased [Unknown]
  - Spleen disorder [Unknown]
  - Abdominal pain [Unknown]
  - Contusion [Unknown]

NARRATIVE: CASE EVENT DATE: 20190812
